FAERS Safety Report 8481112-2 (Version None)
Quarter: 2012Q3

REPORT INFORMATION
  Report Type: 
  Country: None (occurrence: None)
  Receive Date: 20120702
  Receipt Date: 20120619
  Transmission Date: 20120928
  Serious: Yes (Other)
  Sender: FDA-Public Use
  Company Number: US-JNJFOC-20120609654

PATIENT
  Sex: Female
  Weight: 63.05 kg

DRUGS (13)
  1. FENTANYL-100 [Suspect]
     Indication: SCIATICA
     Route: 062
     Dates: start: 20080101, end: 20080101
  2. DURAGESIC-100 [Suspect]
     Indication: SCOLIOSIS
     Route: 062
     Dates: start: 20080101
  3. DURAGESIC-100 [Suspect]
     Indication: ARTHRITIS
     Route: 062
     Dates: start: 20080101
  4. FENTANYL-100 [Suspect]
     Indication: SCOLIOSIS
     Route: 062
     Dates: start: 20080101, end: 20080101
  5. FENTANYL-100 [Suspect]
     Indication: CERVICAL VERTEBRAL FRACTURE
     Route: 062
     Dates: start: 20120601
  6. CYMBALTA [Concomitant]
     Indication: DEPRESSION
     Route: 048
     Dates: start: 20050101
  7. DURAGESIC-100 [Suspect]
     Indication: CERVICAL VERTEBRAL FRACTURE
     Route: 062
     Dates: start: 20080101
  8. FENTANYL-100 [Suspect]
     Indication: ARTHRITIS
     Route: 062
     Dates: start: 20080101, end: 20080101
  9. FENTANYL-100 [Suspect]
     Route: 062
     Dates: start: 20080101, end: 20080101
  10. FENTANYL-100 [Suspect]
     Route: 062
     Dates: start: 20120601
  11. DURAGESIC-100 [Suspect]
     Indication: SCIATICA
     Route: 062
     Dates: start: 20080101
  12. FENTANYL-100 [Suspect]
     Route: 062
     Dates: start: 20120601
  13. FENTANYL-100 [Suspect]
     Route: 062
     Dates: start: 20120601

REACTIONS (14)
  - ASTHENIA [None]
  - WEIGHT FLUCTUATION [None]
  - HAIR TEXTURE ABNORMAL [None]
  - THERAPEUTIC RESPONSE DECREASED [None]
  - INCORRECT DRUG ADMINISTRATION DURATION [None]
  - PRODUCT ADHESION ISSUE [None]
  - DRUG ADMINISTERED AT INAPPROPRIATE SITE [None]
  - CONSTIPATION [None]
  - APPLICATION SITE SCAR [None]
  - PRODUCT QUALITY ISSUE [None]
  - WRONG TECHNIQUE IN DRUG USAGE PROCESS [None]
  - DRUG DIVERSION [None]
  - WITHDRAWAL SYNDROME [None]
  - PAIN [None]
